FAERS Safety Report 13574247 (Version 2)
Quarter: 2017Q2

REPORT INFORMATION
  Report Type: Spontaneous
  Country: US (occurrence: US)
  Receive Date: 20170523
  Receipt Date: 20170531
  Transmission Date: 20170830
  Serious: Yes (Disabling)
  Sender: FDA-Public Use
  Company Number: US-PROCTER_AND_GAMBLE-GS17033516

PATIENT
  Age: 29 Year
  Sex: Male
  Weight: 85.3 kg

DRUGS (2)
  1. OLD SPICE FRESHER COLLECTION DENALI [Suspect]
     Active Substance: ALUMINUM ZIRCONIUM TRICHLOROHYDREX GLY
     Dosage: 2 TIMES A DAY, TARGETED AREA, USED 1 STICK MONTHLY
     Route: 061
     Dates: start: 201506, end: 201701
  2. PEPCID [Concomitant]
     Active Substance: FAMOTIDINE

REACTIONS (15)
  - Erythema [Unknown]
  - Pain of skin [Unknown]
  - Skin burning sensation [Recovered/Resolved]
  - Mobility decreased [Unknown]
  - Third degree chemical burn of skin [Not Recovered/Not Resolved]
  - Scab [Not Recovered/Not Resolved]
  - Rash [Unknown]
  - Dry skin [Not Recovered/Not Resolved]
  - Discomfort [Not Recovered/Not Resolved]
  - Eczema [Not Recovered/Not Resolved]
  - Deformity [Not Recovered/Not Resolved]
  - Chemical burn of skin [Not Recovered/Not Resolved]
  - Pruritus [Not Recovered/Not Resolved]
  - Dermatitis contact [Unknown]
  - Skin irritation [Unknown]

NARRATIVE: CASE EVENT DATE: 201701
